FAERS Safety Report 9011009 (Version 1)
Quarter: 2013Q1

REPORT INFORMATION
  Report Type: Spontaneous
  Country: AU (occurrence: AU)
  Receive Date: 20130109
  Receipt Date: 20130109
  Transmission Date: 20140127
  Serious: No
  Sender: FDA-Public Use
  Company Number: AU-009507513-1212AUS005889

PATIENT
  Age: 63 Year
  Sex: Male

DRUGS (4)
  1. SAPHRIS [Suspect]
     Dosage: 10 MG, BID
     Route: 060
  2. ESCITALOPRAM [Concomitant]
  3. LITHIUM CARBONATE [Concomitant]
  4. QUETIAPINE FUMARATE [Concomitant]

REACTIONS (4)
  - Arthralgia [Recovered/Resolved]
  - Anxiety [Recovered/Resolved]
  - Toothache [Recovered/Resolved]
  - Cough [Recovered/Resolved]
